FAERS Safety Report 25689910 (Version 1)
Quarter: 2025Q3

REPORT INFORMATION
  Report Type: Spontaneous
  Country: US (occurrence: US)
  Receive Date: 20250818
  Receipt Date: 20250818
  Transmission Date: 20251021
  Serious: Yes (Hospitalization, Other)
  Sender: ABBVIE
  Company Number: US-ABBVIE-6415729

PATIENT

DRUGS (1)
  1. REFRESH P.M. [Suspect]
     Active Substance: MINERAL OIL\PETROLATUM
     Indication: Dry eye
     Route: 047

REACTIONS (7)
  - Blindness transient [Unknown]
  - Skin cancer [Unknown]
  - Product storage error [Unknown]
  - Myocardial infarction [Unknown]
  - Sjogren^s syndrome [Unknown]
  - Eye injury [Unknown]
  - Corneal operation [Unknown]
